FAERS Safety Report 7434997-2 (Version None)
Quarter: 2011Q2

REPORT INFORMATION
  Report Type: 
  Country: None (occurrence: None)
  Receive Date: 20110415
  Receipt Date: 20100825
  Transmission Date: 20111010
  Serious: Yes (Disabling, Other)
  Sender: FDA-Public Use
  Company Number: APP201000508

PATIENT
  Age: 15 Year
  Sex: Male

DRUGS (3)
  1. ANCEF [Concomitant]
  2. SENSORCAINE [Suspect]
     Indication: MUSCULOSKELETAL PAIN
     Dosage: 100 ML, INTRA-ARTICULAR
     Route: 014
     Dates: start: 20050809, end: 20050811
  3. ON-Q PAINBUSTER PAIN PUMP [Suspect]
     Indication: MUSCULOSKELETAL PAIN
     Dates: start: 20050809, end: 20050811

REACTIONS (5)
  - MUSCULOSKELETAL PAIN [None]
  - MUSCULOSKELETAL DISORDER [None]
  - ROAD TRAFFIC ACCIDENT [None]
  - CHONDROLYSIS [None]
  - JOINT INJURY [None]
